FAERS Safety Report 21380625 (Version 5)
Quarter: 2024Q2

REPORT INFORMATION
  Report Type: Report from Study
  Country: CO (occurrence: CO)
  Receive Date: 20220927
  Receipt Date: 20240410
  Transmission Date: 20240716
  Serious: Yes (Hospitalization)
  Sender: FDA-Public Use
  Company Number: CO-BAYER-2022A130848

PATIENT
  Age: 67 Year
  Sex: Female

DRUGS (5)
  1. ADEMPAS [Suspect]
     Active Substance: RIOCIGUAT
     Indication: Pulmonary arterial hypertension
     Dosage: 2.5 MG, Q8HR
     Dates: start: 20180404, end: 20231029
  2. BOSENTAN [Concomitant]
     Active Substance: BOSENTAN
     Indication: Pulmonary hypertension
  3. CARVEDILOL [Concomitant]
     Active Substance: CARVEDILOL
  4. FUROSEMIDE [Concomitant]
     Active Substance: FUROSEMIDE
  5. WARFARIN [Concomitant]
     Active Substance: WARFARIN
     Indication: Pulmonary embolism

REACTIONS (13)
  - Gait disturbance [Recovered/Resolved with Sequelae]
  - Epistaxis [Recovered/Resolved with Sequelae]
  - Haemoglobin decreased [Recovered/Resolved]
  - Pharmacophobia [None]
  - Dizziness [Recovered/Resolved with Sequelae]
  - Blood potassium decreased [Recovered/Resolved]
  - Hypotension [Recovered/Resolved with Sequelae]
  - Syncope [None]
  - Product dose omission issue [None]
  - Asthenia [None]
  - Viral diarrhoea [None]
  - Dyspepsia [None]
  - Dehydration [None]

NARRATIVE: CASE EVENT DATE: 20220801
